FAERS Safety Report 14933942 (Version 2)
Quarter: 2018Q2

REPORT INFORMATION
  Report Type: Report from Study
  Country: GT (occurrence: GT)
  Receive Date: 20180524
  Receipt Date: 20180530
  Transmission Date: 20180711
  Serious: Yes (Hospitalization, Other)
  Sender: FDA-Public Use
  Company Number: PHHY2018GT069338

PATIENT
  Sex: Female
  Weight: 62 kg

DRUGS (3)
  1. AFINITOR [Suspect]
     Active Substance: EVEROLIMUS
     Indication: BREAST CANCER
     Dosage: 5 MG, UNK
     Route: 065
  2. AROMASIN [Concomitant]
     Active Substance: EXEMESTANE
     Indication: PRODUCT USED FOR UNKNOWN INDICATION
     Dosage: 25 MG, QD (1 EVERY 24 HOURS)
     Route: 048
  3. AFINITOR [Suspect]
     Active Substance: EVEROLIMUS
     Dosage: 10 MG, QD (1 EVERY 24 HOURS)
     Route: 048
     Dates: start: 201801

REACTIONS (16)
  - Stomatitis [Recovered/Resolved]
  - Hypersensitivity [Unknown]
  - Pneumonia [Unknown]
  - Fatigue [Unknown]
  - Cough [Recovering/Resolving]
  - Pneumothorax [Unknown]
  - Dyspnoea [Recovering/Resolving]
  - Gingival pain [Unknown]
  - Nausea [Recovering/Resolving]
  - Asthenia [Unknown]
  - Mastication disorder [Unknown]
  - Pain [Unknown]
  - Dizziness [Recovering/Resolving]
  - Pleural effusion [Unknown]
  - Vomiting [Recovering/Resolving]
  - Food allergy [Unknown]
